FAERS Safety Report 5021924-0 (Version None)
Quarter: 2006Q2

REPORT INFORMATION
  Report Type: 
  Country: None (occurrence: None)
  Receive Date: 20060605
  Receipt Date: 20060516
  Transmission Date: 20061013
  Serious: Yes (Hospitalization, Other)
  Sender: FDA-Public Use
  Company Number: US200605003703

PATIENT
  Sex: Male

DRUGS (4)
  1. HUMALOG MIX 75/25 [Suspect]
     Indication: DIABETES MELLITUS
     Dates: start: 20040101
  2. PRAVACHOL [Concomitant]
  3. METOPROLOL SUCCINATE [Concomitant]
  4. ASPRO (ACETYLSALICYLIC ACID) [Concomitant]

REACTIONS (6)
  - BACK DISORDER [None]
  - BLOOD GLUCOSE DECREASED [None]
  - BLOOD GLUCOSE INCREASED [None]
  - DIZZINESS [None]
  - NEUROPATHY [None]
  - STENT PLACEMENT [None]
